FAERS Safety Report 14312876 (Version 1)
Quarter: 2017Q4

REPORT INFORMATION
  Report Type: Spontaneous
  Country: US (occurrence: US)
  Receive Date: 20171220
  Receipt Date: 20171220
  Transmission Date: 20180321
  Serious: No
  Sender: FDA-Public Use
  Company Number: None

PATIENT
  Age: 51 Year
  Sex: Female

DRUGS (1)
  1. REVLIMID [Suspect]
     Active Substance: LENALIDOMIDE
     Indication: PLASMA CELL MYELOMA
     Dosage: 15MG QD X 21 DAYS ORAL
     Route: 048
     Dates: start: 20150514

REACTIONS (5)
  - Diarrhoea [None]
  - Abdominal discomfort [None]
  - Headache [None]
  - Decreased appetite [None]
  - Therapy cessation [None]

NARRATIVE: CASE EVENT DATE: 20171114
